FAERS Safety Report 20007634 (Version 1)
Quarter: 2021Q4

REPORT INFORMATION
  Report Type: Spontaneous
  Country: SE (occurrence: SE)
  Receive Date: 20211028
  Receipt Date: 20211028
  Transmission Date: 20220303
  Serious: Yes (Hospitalization, Other)
  Sender: FDA-Public Use
  Company Number: SE-NOVARTISPH-PHHY2014SE131058

PATIENT
  Sex: Male

DRUGS (23)
  1. BLEOMYCIN [Suspect]
     Active Substance: BLEOMYCIN SULFATE
     Indication: Hodgkin^s disease
     Dosage: UNK UNK, UNKNOWN
     Route: 065
     Dates: start: 200804
  2. BLEOMYCIN [Suspect]
     Active Substance: BLEOMYCIN SULFATE
     Indication: Vanishing bile duct syndrome
  3. ETOPOSIDE [Suspect]
     Active Substance: ETOPOSIDE
     Indication: Hodgkin^s disease
     Dosage: UNK UKN, UNK
     Route: 065
     Dates: start: 200804
  4. ETOPOSIDE [Suspect]
     Active Substance: ETOPOSIDE
     Indication: Vanishing bile duct syndrome
  5. DOXORUBICIN [Suspect]
     Active Substance: DOXORUBICIN
     Indication: Hodgkin^s disease
     Dosage: UNK UKN, UNK
     Route: 065
     Dates: start: 200804
  6. DOXORUBICIN [Suspect]
     Active Substance: DOXORUBICIN
     Indication: Vanishing bile duct syndrome
  7. VINCRISTINE [Suspect]
     Active Substance: VINCRISTINE
     Indication: Hodgkin^s disease
     Dosage: UNK UNK, UNKNOWN
     Route: 065
     Dates: start: 200804
  8. VINCRISTINE [Suspect]
     Active Substance: VINCRISTINE
     Indication: Vanishing bile duct syndrome
  9. PREDNISONE [Suspect]
     Active Substance: PREDNISONE
     Indication: Hodgkin^s disease
     Dosage: UNK UKN, UNK
     Route: 066
     Dates: start: 200804
  10. PREDNISONE [Suspect]
     Active Substance: PREDNISONE
     Indication: Vanishing bile duct syndrome
  11. CYCLOPHOSPHAMIDE [Suspect]
     Active Substance: CYCLOPHOSPHAMIDE
     Indication: Hodgkin^s disease
     Dosage: UNK UKN, UNK
     Route: 065
     Dates: start: 200804
  12. CYCLOPHOSPHAMIDE [Suspect]
     Active Substance: CYCLOPHOSPHAMIDE
     Indication: Vanishing bile duct syndrome
  13. PROCARBAZINE [Suspect]
     Active Substance: PROCARBAZINE
     Indication: Hodgkin^s disease
     Dosage: UNK UNK, UNKNOWN
     Route: 065
     Dates: start: 200804
  14. PROCARBAZINE [Suspect]
     Active Substance: PROCARBAZINE
     Indication: Vanishing bile duct syndrome
  15. RITUXIMAB [Suspect]
     Active Substance: RITUXIMAB
     Indication: Hodgkin^s disease
     Dosage: 375 MG/M2, FOUR TIMES WEEKLY (0.25 WEEKLY)
     Route: 065
     Dates: start: 200804
  16. RITUXIMAB [Suspect]
     Active Substance: RITUXIMAB
     Indication: Jaundice
  17. LAMIVUDINE [Concomitant]
     Active Substance: LAMIVUDINE
     Indication: Antiviral prophylaxis
     Dosage: UNK UNK, UNKNOWN
     Route: 065
  18. TRIMETOPRIM SULFA [Concomitant]
     Indication: Antifungal prophylaxis
     Dosage: UNK UNK, UNKNOWN
     Route: 065
  19. ACYCLOVIR [Concomitant]
     Active Substance: ACYCLOVIR
     Indication: Antiviral prophylaxis
     Dosage: UNK UNK, UNKNOWN
     Route: 065
  20. PENTACARINAT [Concomitant]
     Active Substance: PENTAMIDINE ISETHIONATE
     Indication: Product used for unknown indication
     Dosage: UNK UNK, UNKNOWN
     Route: 055
  21. URSODIOL [Concomitant]
     Active Substance: URSODIOL
     Indication: Pruritus
     Dosage: UNK, UNKNOWN
     Route: 065
  22. RIFAMPIN [Concomitant]
     Active Substance: RIFAMPIN
     Indication: Pruritus
     Dosage: UNK UNK, UNKNOWN
     Route: 065
  23. VENLAFAXINE [Concomitant]
     Active Substance: VENLAFAXINE HYDROCHLORIDE
     Indication: Pruritus
     Dosage: UNK UNK, UNKNOWN
     Route: 065

REACTIONS (3)
  - Neutropenic sepsis [Unknown]
  - Klebsiella infection [Unknown]
  - Neutropenia [Recovered/Resolved]
